FAERS Safety Report 7505196-0 (Version None)
Quarter: 2011Q2

REPORT INFORMATION
  Report Type: 
  Country: None (occurrence: None)
  Receive Date: 20110517
  Receipt Date: 20110510
  Transmission Date: 20111010
  Serious: Yes (Hospitalization, Disabling)
  Sender: FDA-Public Use
  Company Number: 2010SP046935

PATIENT
  Age: 40 Year
  Sex: Female
  Weight: 101.6057 kg

DRUGS (12)
  1. NUVARING [Suspect]
     Indication: MENSTRUATION IRREGULAR
     Dates: start: 20070301, end: 20080915
  2. NUVARING [Suspect]
     Indication: DYSMENORRHOEA
     Dates: start: 20070301, end: 20080915
  3. NUVARING [Suspect]
     Indication: CONTRACEPTION
     Dates: start: 20070301, end: 20080915
  4. NUVARING [Suspect]
     Indication: PREMENSTRUAL SYNDROME
     Dates: start: 20070301, end: 20080915
  5. SINGULAIR [Concomitant]
  6. COUMADIN [Suspect]
     Indication: PULMONARY EMBOLISM
     Dates: start: 20080920, end: 20100701
  7. CALCIUM CARBONATE [Concomitant]
  8. FLOVENT [Concomitant]
  9. ZEGERID [Concomitant]
  10. PROZAC [Concomitant]
  11. ALBUTEROL SULFATE AUTOHALER [Concomitant]
  12. ZYRTEC [Concomitant]

REACTIONS (30)
  - ATELECTASIS [None]
  - CELLULITIS [None]
  - PALPITATIONS [None]
  - HAEMATOCRIT DECREASED [None]
  - ANXIETY [None]
  - PULMONARY MASS [None]
  - IMPAIRED WORK ABILITY [None]
  - LICHEN PLANUS [None]
  - BURSITIS [None]
  - MUSCULOSKELETAL CHEST PAIN [None]
  - TOOTH ABSCESS [None]
  - MUSCULOSKELETAL DISORDER [None]
  - LUNG INFILTRATION [None]
  - PLEURISY [None]
  - PULMONARY EMBOLISM [None]
  - PSORIATIC ARTHROPATHY [None]
  - PATELLOFEMORAL PAIN SYNDROME [None]
  - PLEURAL EFFUSION [None]
  - HAEMORRHAGE [None]
  - DUODENITIS [None]
  - GAIT DISTURBANCE [None]
  - REPETITIVE STRAIN INJURY [None]
  - ASPIRATION PLEURAL CAVITY ABNORMAL [None]
  - GASTRIC POLYPS [None]
  - NEURODERMATITIS [None]
  - FOOT DEFORMITY [None]
  - PULMONARY INFARCTION [None]
  - HAEMOGLOBIN DECREASED [None]
  - RECTAL HAEMORRHAGE [None]
  - TREATMENT NONCOMPLIANCE [None]
